FAERS Safety Report 13026560 (Version 1)
Quarter: 2016Q4

REPORT INFORMATION
  Report Type: Spontaneous
  Country: JP (occurrence: JP)
  Receive Date: 20161214
  Receipt Date: 20161214
  Transmission Date: 20170207
  Serious: Yes (Other)
  Sender: FDA-Public Use
  Company Number: JP-PFIZER INC-2016569083

PATIENT
  Age: 65 Year
  Sex: Male

DRUGS (4)
  1. RALTEGRAVIR. [Concomitant]
     Active Substance: RALTEGRAVIR
     Indication: HIV INFECTION
     Dosage: UNK (COMBINED ANTIRETROVIRAL THERAPY (CART))
  2. LAMIVUDINE. [Concomitant]
     Active Substance: LAMIVUDINE
     Indication: HIV INFECTION
     Dosage: UNK (COMBINED ANTIRETROVIRAL THERAPY (CART))
  3. DOXORUBICIN HCL [Suspect]
     Active Substance: DOXORUBICIN HYDROCHLORIDE
     Indication: CASTLEMAN^S DISEASE
     Dosage: 20 MG/M2, CYCLIC (EVERY 21 DAYS, LIPOSOMAL MONOTHERAPY, FIVE CYCLES)
     Dates: start: 201211
  4. ABACAVIR. [Concomitant]
     Active Substance: ABACAVIR
     Indication: HIV INFECTION
     Dosage: UNK (COMBINED ANTIRETROVIRAL THERAPY (CART))

REACTIONS (1)
  - Interstitial lung disease [Unknown]
